FAERS Safety Report 18609932 (Version 1)
Quarter: 2020Q4

REPORT INFORMATION
  Report Type: Spontaneous
  Country: GB (occurrence: GB)
  Receive Date: 20201214
  Receipt Date: 20201214
  Transmission Date: 20210114
  Serious: Yes (Other)
  Sender: FDA-Public Use
  Company Number: GB-TEVA-2020-GB-1856976

PATIENT
  Age: 68 Year
  Sex: Female
  Weight: 65.77 kg

DRUGS (5)
  1. AMLODIPINE [Suspect]
     Active Substance: AMLODIPINE BESYLATE
     Indication: HYPERTENSION
     Dosage: UNIT DOSE : 10 MG
     Route: 048
     Dates: start: 20201031, end: 20201104
  2. DOXAZOSIN [Concomitant]
     Active Substance: DOXAZOSIN MESYLATE
     Dosage: UNIT DOSE : 2 MG
  3. LETROZOLE. [Concomitant]
     Active Substance: LETROZOLE
     Dosage: UNIT DOSE : 2.5 MG
  4. DOXAZOSIN [Concomitant]
     Active Substance: DOXAZOSIN MESYLATE
     Dosage: UNIT DOSE : 4 MG
  5. AMLODIPINE [Suspect]
     Active Substance: AMLODIPINE BESYLATE
     Dosage: UNIT DOSE : 5 MG
     Route: 065
     Dates: end: 20201030

REACTIONS (2)
  - Urticaria [Recovering/Resolving]
  - Rash [Unknown]

NARRATIVE: CASE EVENT DATE: 20201101
